FAERS Safety Report 7754222-2 (Version None)
Quarter: 2011Q3

REPORT INFORMATION
  Report Type: 
  Country: None (occurrence: None)
  Receive Date: 20110913
  Receipt Date: 20110913
  Transmission Date: 20111222
  Serious: Yes (Hospitalization)
  Sender: FDA-Public Use
  Company Number: 019276

PATIENT
  Age: 76 Year
  Sex: Female
  Weight: 58 kg

DRUGS (9)
  1. PEGAPTANIB SODIUM; PLACEBO (CODE NOT BROKEN) UNKNOWN [Suspect]
     Indication: DIABETIC RETINAL OEDEMA
     Dates: start: 20110428, end: 20110721
  2. AMARYL [Concomitant]
  3. TRICHLORMETHIAZIDE [Concomitant]
  4. CRESTOR [Concomitant]
  5. PLETAL [Concomitant]
  6. MICARDIS [Concomitant]
  7. EPOGIN (EPOETIN ALFA) [Concomitant]
  8. ISOSORBIDE DINITRATE [Concomitant]
  9. SITAGLIPTIN PHOSPHATE (SITAGLIPTIN PHOSPHATE) [Concomitant]

REACTIONS (1)
  - CEREBRAL INFARCTION [None]
